FAERS Safety Report 9090918 (Version 1)
Quarter: 2013Q1

REPORT INFORMATION
  Report Type: Spontaneous
  Country: US (occurrence: US)
  Receive Date: 20130201
  Receipt Date: 20130201
  Transmission Date: 20140127
  Serious: No
  Sender: FDA-Public Use
  Company Number: US-GALDERMA-US-GDP-12414876

PATIENT
  Age: 16 Year
  Sex: Male
  Weight: 50 kg

DRUGS (4)
  1. EPIDUO [Suspect]
     Indication: ACNE
     Dosage: UNKNOWN
     Route: 061
     Dates: start: 20120811, end: 20120819
  2. CETAPHIL [Suspect]
     Indication: THERAPEUTIC SKIN CARE TOPICAL
     Dosage: UNKNOWN
     Route: 061
     Dates: start: 20120811, end: 20120819
  3. CETAPHIL [Suspect]
     Indication: THERAPEUTIC SKIN CARE TOPICAL
     Dosage: UNKNOWN
     Route: 061
     Dates: start: 20120811, end: 20120819
  4. DOXYCYCLINE HYCLATE [Concomitant]
     Indication: ACNE
     Route: 048
     Dates: start: 20120811

REACTIONS (4)
  - Erythema [Recovered/Resolved]
  - Skin burning sensation [Recovered/Resolved]
  - Pain of skin [Recovered/Resolved]
  - Skin irritation [Recovered/Resolved]
